FAERS Safety Report 23939114 (Version 2)
Quarter: 2024Q3

REPORT INFORMATION
  Report Type: Spontaneous
  Country: US (occurrence: US)
  Receive Date: 20240604
  Receipt Date: 20240709
  Transmission Date: 20241016
  Serious: Yes (Death, Hospitalization, Other)
  Sender: MERCK
  Company Number: US-009507513-2405USA009263

PATIENT
  Sex: Male

DRUGS (3)
  1. KEYTRUDA [Suspect]
     Active Substance: PEMBROLIZUMAB
     Indication: Product used for unknown indication
     Dosage: UNK
  2. KRAZATI [Suspect]
     Active Substance: ADAGRASIB
     Indication: Lung neoplasm malignant
     Dosage: 600 MILLIGRAM, BID
     Route: 048
     Dates: start: 20240419, end: 20240426
  3. KRAZATI [Suspect]
     Active Substance: ADAGRASIB
     Dosage: 600 MILLIGRAM, QD
     Route: 048
     Dates: start: 20240430, end: 20240503

REACTIONS (30)
  - Death [Fatal]
  - Brain neoplasm malignant [Unknown]
  - Skin ulcer [Not Recovered/Not Resolved]
  - Blood pressure systolic decreased [Recovering/Resolving]
  - Dysstasia [Not Recovered/Not Resolved]
  - Prothrombin level increased [Not Recovered/Not Resolved]
  - International normalised ratio increased [Not Recovered/Not Resolved]
  - Confusional state [Recovering/Resolving]
  - Contusion [Not Recovered/Not Resolved]
  - Fatigue [Recovering/Resolving]
  - Asthenia [Not Recovered/Not Resolved]
  - Peripheral swelling [Not Recovered/Not Resolved]
  - Oedema peripheral [Recovering/Resolving]
  - Seizure [Recovered/Resolved]
  - Fall [Recovered/Resolved]
  - Mobility decreased [Recovering/Resolving]
  - Chest discomfort [Recovered/Resolved]
  - Fall [Recovered/Resolved]
  - Urinary incontinence [Recovered/Resolved]
  - Depression [Not Recovered/Not Resolved]
  - Nausea [Not Recovered/Not Resolved]
  - Diarrhoea [Not Recovered/Not Resolved]
  - Asthenia [Not Recovered/Not Resolved]
  - Fatigue [Not Recovered/Not Resolved]
  - Dizziness [Not Recovered/Not Resolved]
  - Dyspnoea [Recovered/Resolved]
  - Mental status changes [Not Recovered/Not Resolved]
  - Oxygen saturation decreased [Recovered/Resolved]
  - Speech disorder [Unknown]
  - Cough [Unknown]

NARRATIVE: CASE EVENT DATE: 20240101
